FAERS Safety Report 20186875 (Version 1)
Quarter: 2021Q4

REPORT INFORMATION
  Report Type: Spontaneous
  Country: US (occurrence: None)
  Receive Date: 20211214
  Receipt Date: 20211214
  Transmission Date: 20220303
  Serious: No
  Sender: FDA-Public Use
  Company Number: None

PATIENT
  Age: 69 Year
  Sex: Female

DRUGS (10)
  1. WELIREG [Suspect]
     Active Substance: BELZUTIFAN
     Indication: Renal cancer
     Dosage: FREQUENCY : DAILY;?
     Route: 048
     Dates: start: 20211012
  2. LORATADINE [Concomitant]
  3. ASPIRIN [Concomitant]
  4. CHOLECALCIFEROL [Concomitant]
  5. COZAAR [Concomitant]
  6. METOPROLOL [Concomitant]
     Active Substance: METOPROLOL
  7. SERTRALINE [Concomitant]
  8. TRAMADOL [Concomitant]
  9. COLESTIPOL [Concomitant]
  10. LOMOTIL [Concomitant]
     Active Substance: ATROPINE SULFATE\DIPHENOXYLATE HYDROCHLORIDE

REACTIONS (3)
  - Dyspnoea [None]
  - Hypoxia [None]
  - Heart rate increased [None]

NARRATIVE: CASE EVENT DATE: 20211214
